FAERS Safety Report 7255893-X (Version None)
Quarter: 2011Q1

REPORT INFORMATION
  Report Type: 
  Country: None (occurrence: None)
  Receive Date: 20110129
  Receipt Date: 20100511
  Transmission Date: 20110831
  Serious: No
  Sender: FDA-Public Use
  Company Number: US-ABBOTT-10P-163-0643601-00

PATIENT
  Sex: Female
  Weight: 58.566 kg

DRUGS (7)
  1. HUMIRA [Suspect]
     Dates: start: 20100507
  2. PREDNISONE [Concomitant]
     Indication: RHEUMATOID ARTHRITIS
  3. HUMIRA [Suspect]
     Indication: RHEUMATOID ARTHRITIS
     Route: 058
     Dates: start: 20080101, end: 20100427
  4. MULTIVITAMIN [Concomitant]
     Indication: PRODUCT USED FOR UNKNOWN INDICATION
  5. HYDROCODONE [Concomitant]
     Indication: RHEUMATOID ARTHRITIS
  6. NAPROXEN [Concomitant]
     Indication: RHEUMATOID ARTHRITIS
  7. LORAZEPAM [Concomitant]
     Indication: INSOMNIA

REACTIONS (2)
  - INFLUENZA [None]
  - HYPERSENSITIVITY [None]
